FAERS Safety Report 24398387 (Version 1)
Quarter: 2024Q4

REPORT INFORMATION
  Report Type: Spontaneous
  Country: US (occurrence: US)
  Receive Date: 20241004
  Receipt Date: 20241004
  Transmission Date: 20250114
  Serious: No
  Sender: INTRA-CELLULAR THERAPIES
  Company Number: US-INTRA-CELLULAR THERAPIES, INC.-2024ICT01403

PATIENT
  Age: 21 Year
  Sex: Female

DRUGS (3)
  1. CAPLYTA [Suspect]
     Active Substance: LUMATEPERONE
     Indication: Bipolar I disorder
     Dosage: 21 MG
  2. CAPLYTA [Suspect]
     Active Substance: LUMATEPERONE
     Indication: Affective disorder
  3. CANNABIS SATIVA SUBSP. INDICA TOP [Concomitant]
     Active Substance: CANNABIS SATIVA SUBSP. INDICA TOP
     Dosage: RECREATIONAL

REACTIONS (7)
  - Erythema [Unknown]
  - Feeling hot [Unknown]
  - Nasal congestion [Unknown]
  - Dry throat [Unknown]
  - Burning sensation [Unknown]
  - Pruritus [Unknown]
  - Hypersensitivity [Unknown]
